FAERS Safety Report 9000320 (Version 1)
Quarter: 2012Q4

REPORT INFORMATION
  Report Type: Spontaneous
  Country: US (occurrence: None)
  Receive Date: 20121221
  Receipt Date: 20121221
  Transmission Date: 20130627
  Serious: Yes (Hospitalization, Other)
  Sender: FDA-Public Use
  Company Number: UTC-025781

PATIENT
  Age: 88 Year
  Sex: Female
  Weight: 68.18 kg

DRUGS (4)
  1. TYVASO [Suspect]
     Indication: PRIMARY PULMONARY HYPERTENSION
     Route: 055
     Dates: start: 20121102, end: 20121108
  2. TYVASO [Suspect]
     Indication: PRIMARY PULMONARY HYPERTENSION
     Route: 055
     Dates: start: 2012, end: 2012
  3. TRACLEER (BOSENTAN) [Concomitant]
  4. COUMADIN (WARFARIN SODIUM) [Concomitant]

REACTIONS (1)
  - Cardiac failure congestive [None]
